FAERS Safety Report 8792917 (Version 2)
Quarter: 2012Q4

REPORT INFORMATION
  Report Type: 
  Country: US (occurrence: US)
  Receive Date: 20120918
  Receipt Date: 20121026
  Transmission Date: 20130627
  Serious: No
  Sender: FDA-Public Use
  Company Number: US-PFIZER INC-2012226494

PATIENT
  Age: 66 Year
  Sex: Male
  Weight: 74.83 kg

DRUGS (5)
  1. TORISEL [Suspect]
     Indication: RENAL CELL CARCINOMA
     Dosage: 25 mg, weekly
     Route: 042
     Dates: start: 20120828, end: 201209
  2. TOPROL [Concomitant]
     Indication: HYPERTENSION
     Dosage: 100 mg, daily
  3. LOSARTAN [Concomitant]
     Indication: HYPERTENSION
     Dosage: 100 mg, daily
  4. CLOPIDOGREL [Concomitant]
     Dosage: 75 mg, daily
  5. ATORVASTATIN CALCIUM [Concomitant]
     Dosage: 80 mg, daily

REACTIONS (6)
  - Epistaxis [Recovered/Resolved]
  - Mucosal inflammation [Recovered/Resolved]
  - Headache [Recovered/Resolved]
  - Haemoglobin decreased [Recovered/Resolved]
  - Blood potassium decreased [Recovered/Resolved]
  - Blood albumin decreased [Recovered/Resolved]
